FAERS Safety Report 23713253 (Version 1)
Quarter: 2024Q2

REPORT INFORMATION
  Report Type: Spontaneous
  Country: CN (occurrence: None)
  Receive Date: 20240405
  Receipt Date: 20240405
  Transmission Date: 20240716
  Serious: Yes (Other)
  Sender: FDA-Public Use
  Company Number: 2024A079493

PATIENT
  Age: 21915 Day
  Sex: Male
  Weight: 60 kg

DRUGS (5)
  1. PULMICORT TURBUHALER [Suspect]
     Active Substance: BUDESONIDE
     Indication: Chronic obstructive pulmonary disease
     Route: 055
     Dates: start: 20210320, end: 20210320
  2. PULMICORT TURBUHALER [Suspect]
     Active Substance: BUDESONIDE
     Indication: Lung disorder
     Route: 055
     Dates: start: 20210320, end: 20210320
  3. PULMICORT TURBUHALER [Suspect]
     Active Substance: BUDESONIDE
     Indication: Diabetic ketosis
     Route: 055
     Dates: start: 20210320, end: 20210320
  4. PULMICORT TURBUHALER [Suspect]
     Active Substance: BUDESONIDE
     Indication: Pulmonary tuberculosis
     Route: 055
     Dates: start: 20210320, end: 20210320
  5. BRICANYL [Concomitant]
     Active Substance: TERBUTALINE SULFATE

REACTIONS (4)
  - Tachypnoea [Recovering/Resolving]
  - Wheezing [Recovering/Resolving]
  - Pruritus [Recovering/Resolving]
  - Flushing [Recovering/Resolving]

NARRATIVE: CASE EVENT DATE: 20210320
